FAERS Safety Report 19509037 (Version 2)
Quarter: 2021Q4

REPORT INFORMATION
  Report Type: Report from Study
  Country: US (occurrence: US)
  Receive Date: 20210708
  Receipt Date: 20211103
  Transmission Date: 20220303
  Serious: Yes (Hospitalization)
  Sender: FDA-Public Use
  Company Number: US-TAKEDA-2021TUS041692

PATIENT
  Age: 42 Year
  Sex: Female

DRUGS (8)
  1. TEDUGLUTIDE [Suspect]
     Active Substance: TEDUGLUTIDE
     Indication: Short-bowel syndrome
     Dosage: 2.086 MILLILITER, QD
     Route: 058
     Dates: start: 20210603, end: 20211001
  2. TEDUGLUTIDE [Suspect]
     Active Substance: TEDUGLUTIDE
     Indication: Short-bowel syndrome
     Dosage: 2.086 MILLILITER, QD
     Route: 058
     Dates: start: 20210603, end: 20211001
  3. TEDUGLUTIDE [Suspect]
     Active Substance: TEDUGLUTIDE
     Indication: Short-bowel syndrome
     Dosage: 2.086 MILLILITER, QD
     Route: 058
     Dates: start: 20210603, end: 20211001
  4. TEDUGLUTIDE [Suspect]
     Active Substance: TEDUGLUTIDE
     Indication: Short-bowel syndrome
     Dosage: 2.086 MILLILITER, QD
     Route: 058
     Dates: start: 20210603, end: 20211001
  5. TEDUGLUTIDE [Suspect]
     Active Substance: TEDUGLUTIDE
     Dosage: 2.086 MILLIGRAM, QD
     Route: 058
     Dates: start: 202106, end: 20211001
  6. TEDUGLUTIDE [Suspect]
     Active Substance: TEDUGLUTIDE
     Dosage: 2.086 MILLIGRAM, QD
     Route: 058
     Dates: start: 202106, end: 20211001
  7. TEDUGLUTIDE [Suspect]
     Active Substance: TEDUGLUTIDE
     Dosage: 2.086 MILLIGRAM, QD
     Route: 058
     Dates: start: 202106, end: 20211001
  8. TEDUGLUTIDE [Suspect]
     Active Substance: TEDUGLUTIDE
     Dosage: 2.086 MILLIGRAM, QD
     Route: 058
     Dates: start: 202106, end: 20211001

REACTIONS (2)
  - Gastrointestinal disorder [Unknown]
  - Inappropriate schedule of product administration [Unknown]

NARRATIVE: CASE EVENT DATE: 20210628
